FAERS Safety Report 15343764 (Version 1)
Quarter: 2018Q4

REPORT INFORMATION
  Report Type: Spontaneous
  Country: FR (occurrence: FR)
  Receive Date: 20180903
  Receipt Date: 20180903
  Transmission Date: 20190204
  Serious: Yes (Other)
  Sender: FDA-Public Use
  Company Number: FR-ROCHE-2178497

PATIENT
  Age: 3 Year
  Sex: Male
  Weight: 16 kg

DRUGS (6)
  1. HALOTHANE. [Suspect]
     Active Substance: HALOTHANE
     Indication: ANAESTHESIA
     Dosage: TRANSPORTED WITH 50/50 MIX OF 02 AND N20
     Route: 055
  2. CELOCURINE [Suspect]
     Active Substance: SUCCINYLCHOLINE
     Indication: ENDOTRACHEAL INTUBATION
     Route: 042
  3. ATROPINE. [Suspect]
     Active Substance: ATROPINE
     Indication: ANAESTHESIA
     Route: 060
  4. THIOPENTAL [Suspect]
     Active Substance: THIOPENTAL
     Indication: ANAESTHESIA
     Route: 065
  5. HALOTHANE. [Suspect]
     Active Substance: HALOTHANE
     Indication: ANAESTHESIA
     Dosage: AFTER OBTENTION OF STABILIZED ANESTHESIA
     Route: 055
  6. DIAZEPAM. [Suspect]
     Active Substance: DIAZEPAM
     Indication: ANAESTHESIA
     Route: 054

REACTIONS (1)
  - Cardiac arrest [Recovered/Resolved]
